FAERS Safety Report 8166697-8 (Version None)
Quarter: 2012Q1

REPORT INFORMATION
  Report Type: 
  Country: None (occurrence: None)
  Receive Date: 20120227
  Receipt Date: 20120217
  Transmission Date: 20120608
  Serious: Yes (Hospitalization)
  Sender: FDA-Public Use
  Company Number: JP-ROCHE-1042412

PATIENT
  Age: 7 Year
  Sex: Female
  Weight: 19 kg

DRUGS (4)
  1. ASVERIN [Concomitant]
     Dosage: DOSAGE IS UNCERTAIN.
     Route: 048
  2. MUCODYNE [Concomitant]
     Dosage: DOSAGE IS UNCERTAIN.
     Route: 048
  3. TAMIFLU [Suspect]
     Indication: INFLUENZA
     Route: 048
     Dates: start: 20120206, end: 20120206
  4. ALEGYSAL [Concomitant]
     Dosage: DOSAGE IS UNCERTAIN.
     Route: 065

REACTIONS (1)
  - ALTERED STATE OF CONSCIOUSNESS [None]
